FAERS Safety Report 16304823 (Version 1)
Quarter: 2019Q2

REPORT INFORMATION
  Report Type: Spontaneous
  Country: US (occurrence: US)
  Receive Date: 20190510
  Receipt Date: 20190510
  Transmission Date: 20190711
  Serious: Yes (Other)
  Sender: FDA-Public Use
  Company Number: None

PATIENT
  Age: 43 Year
  Sex: Female
  Weight: 72 kg

DRUGS (3)
  1. DAILY MULTI VITAMIN [Concomitant]
  2. DULOXETINE HYDROCHLORIDE. [Suspect]
     Active Substance: DULOXETINE HYDROCHLORIDE
     Indication: NEURALGIA
     Dosage: ?          QUANTITY:1 CAPSULE(S);?
     Route: 048
     Dates: start: 20170404, end: 20170916
  3. ALLERGY OTC [Concomitant]

REACTIONS (2)
  - Mental status changes [None]
  - Product quality issue [None]

NARRATIVE: CASE EVENT DATE: 20170916
